FAERS Safety Report 6234624-6 (Version None)
Quarter: 2009Q2

REPORT INFORMATION
  Report Type: 
  Country: None (occurrence: None)
  Receive Date: 20090615
  Receipt Date: 20090407
  Transmission Date: 20091009
  Serious: No
  Sender: FDA-Public Use
  Company Number: DSA_33485_2009

PATIENT
  Sex: Male

DRUGS (5)
  1. XENAZINE [Suspect]
     Indication: TARDIVE DYSKINESIA
     Dosage: 12.5 MG TID
     Dates: start: 20090201, end: 20090210
  2. PROZAC [Concomitant]
  3. ASPIRIN [Concomitant]
  4. ZYPREXA [Concomitant]
  5. RESERPINE [Concomitant]

REACTIONS (2)
  - DEPRESSION [None]
  - DIZZINESS [None]
